FAERS Safety Report 23068530 (Version 1)
Quarter: 2023Q4

REPORT INFORMATION
  Report Type: Spontaneous
  Country: US (occurrence: US)
  Receive Date: 20231016
  Receipt Date: 20231016
  Transmission Date: 20240109
  Serious: Yes (Other)
  Sender: FDA-Public Use
  Company Number: US-RIGEL Pharmaceuticals, INC-2023FOS001058

PATIENT
  Sex: Male
  Weight: 112.18 kg

DRUGS (1)
  1. TAVALISSE [Suspect]
     Active Substance: FOSTAMATINIB
     Indication: Immune thrombocytopenia
     Dosage: 150 MG, BID
     Route: 048
     Dates: start: 20230427, end: 2023

REACTIONS (2)
  - Splenectomy [Unknown]
  - Platelet count [Unknown]

NARRATIVE: CASE EVENT DATE: 20230101
